FAERS Safety Report 7988083-3 (Version None)
Quarter: 2011Q4

REPORT INFORMATION
  Report Type: 
  Country: None (occurrence: None)
  Receive Date: 20111216
  Receipt Date: 20110602
  Transmission Date: 20120403
  Serious: No
  Sender: FDA-Public Use
  Company Number: US-BRISTOL-MYERS SQUIBB COMPANY-15801020

PATIENT
  Age: 24 Year
  Sex: Female

DRUGS (2)
  1. ABILIFY [Suspect]
     Indication: MIGRAINE
     Dosage: STARTED 1 MONTH AGO
  2. ABILIFY [Suspect]
     Indication: MOOD SWINGS
     Dosage: STARTED 1 MONTH AGO

REACTIONS (1)
  - THERAPEUTIC RESPONSE UNEXPECTED [None]
